FAERS Safety Report 23504172 (Version 7)
Quarter: 2024Q1

REPORT INFORMATION
  Report Type: Spontaneous
  Country: CL (occurrence: None)
  Receive Date: 20240209
  Receipt Date: 20240212
  Transmission Date: 20240409
  Serious: Yes (Disabling, Other)
  Sender: FDA-Public Use
  Company Number: CL-ROCHE-3503970

PATIENT
  Sex: Female
  Weight: 80 kg

DRUGS (5)
  1. AVASTIN [Suspect]
     Active Substance: BEVACIZUMAB
     Indication: Age-related macular degeneration
     Dosage: 1.25 MG/0.05ML
     Route: 050
  2. LOSARTAN [Concomitant]
     Active Substance: LOSARTAN
     Indication: Blood pressure measurement
  3. OMEPRAZOLE [Concomitant]
     Active Substance: OMEPRAZOLE
  4. CLONAZEPAM [Concomitant]
     Active Substance: CLONAZEPAM
     Dosage: FREQUENCY WAS NOT REPORTED
  5. PREGABALIN [Concomitant]
     Active Substance: PREGABALIN
     Indication: Neuropathy peripheral
     Dosage: 1/2 TABLET

REACTIONS (6)
  - Off label use [Unknown]
  - Off label use [Unknown]
  - Maculopathy [Unknown]
  - Eye infection [Unknown]
  - Eye pruritus [Unknown]
  - Blindness [Unknown]
